FAERS Safety Report 13681273 (Version 1)
Quarter: 2017Q2

REPORT INFORMATION
  Report Type: Spontaneous
  Country: US (occurrence: US)
  Receive Date: 20170623
  Receipt Date: 20170623
  Transmission Date: 20170830
  Serious: No
  Sender: FDA-Public Use
  Company Number: US-PFIZER INC-2017266753

PATIENT
  Age: 88 Year
  Sex: Female
  Weight: 70.31 kg

DRUGS (12)
  1. COENZYME Q10 [Concomitant]
     Active Substance: UBIDECARENONE
     Indication: GENERAL SYMPTOM
     Dosage: UNK UNK, 1X/DAY
     Dates: start: 2016
  2. LETROZOLE. [Concomitant]
     Active Substance: LETROZOLE
     Indication: NEOPLASM MALIGNANT
     Dosage: 2.5 MG, DAILY
     Dates: start: 201601
  3. LEVOTHYROXINE. [Concomitant]
     Active Substance: LEVOTHYROXINE
     Indication: THYROID DISORDER
     Dosage: 75 UG, 1X/DAY
  4. IBRANCE [Suspect]
     Active Substance: PALBOCICLIB
     Indication: BREAST CANCER
     Dosage: 125 MG, DAILY
     Route: 048
     Dates: start: 201601
  5. METFORMIN [Concomitant]
     Active Substance: METFORMIN HYDROCHLORIDE
     Indication: DIABETES MELLITUS
     Dosage: 500 MG, 1X/DAY
  6. VITAMIN B12 [Concomitant]
     Active Substance: CYANOCOBALAMIN
     Indication: HYPOVITAMINOSIS
     Dosage: 1000 UG, 1X/DAY
     Dates: start: 2016
  7. VITAMIN D [Concomitant]
     Active Substance: CHOLECALCIFEROL
     Indication: BONE DISORDER
     Dosage: 1000 IU, 2X/DAY
     Dates: start: 2016
  8. HYDROCHLOROTHIAZIDE. [Concomitant]
     Active Substance: HYDROCHLOROTHIAZIDE
     Indication: BLOOD PRESSURE MANAGEMENT
     Dosage: 12.5 MG, 1X/DAY
  9. OMEGA 3 [Concomitant]
     Active Substance: OMEGA-3 FATTY ACIDS
     Indication: GENERAL SYMPTOM
     Dosage: UNK UNK, 1X/DAY
     Dates: start: 2016
  10. IBRANCE [Suspect]
     Active Substance: PALBOCICLIB
     Dosage: 100 MG, DAILY
  11. CALCIUM [Concomitant]
     Active Substance: CALCIUM
     Indication: BONE DISORDER
     Dosage: 500 MG, 2X/DAY
     Dates: start: 2016
  12. ATORVASTATIN [Concomitant]
     Active Substance: ATORVASTATIN
     Indication: BLOOD CHOLESTEROL
     Dosage: 20 MG, 1X/DAY

REACTIONS (2)
  - Nasal discomfort [Recovered/Resolved]
  - Mouth ulceration [Recovered/Resolved]

NARRATIVE: CASE EVENT DATE: 201611
